FAERS Safety Report 10876886 (Version 1)
Quarter: 2015Q1

REPORT INFORMATION
  Report Type: Spontaneous
  Country: US (occurrence: US)
  Receive Date: 20150302
  Receipt Date: 20150302
  Transmission Date: 20150721
  Serious: No
  Sender: FDA-Public Use
  Company Number: US-BIOGENIDEC-2015BI018234

PATIENT
  Age: 35 Year
  Sex: Female

DRUGS (1)
  1. TECFIDERA [Suspect]
     Active Substance: DIMETHYL FUMARATE
     Indication: MULTIPLE SCLEROSIS
     Route: 048
     Dates: start: 201411

REACTIONS (6)
  - Weight decreased [Not Recovered/Not Resolved]
  - Flushing [Unknown]
  - Nausea [Not Recovered/Not Resolved]
  - Pruritus [Unknown]
  - Erythema [Unknown]
  - Urticaria [Unknown]

NARRATIVE: CASE EVENT DATE: 201411
